FAERS Safety Report 8764680 (Version 2)
Quarter: 2012Q4

REPORT INFORMATION
  Report Type: 
  Country: GB (occurrence: GB)
  Receive Date: 20120831
  Receipt Date: 20120913
  Transmission Date: 20130627
  Serious: Yes (Hospitalization)
  Sender: FDA-Public Use
  Company Number: GB-TEVA-355371ISR

PATIENT
  Age: 1 Hour
  Sex: Male
  Weight: 2.2 kg

DRUGS (9)
  1. OMEPRAZOLE [Suspect]
     Indication: DYSPEPSIA
     Route: 064
     Dates: start: 20080919
  2. SEROQUEL XL [Suspect]
     Indication: ANXIETY
     Route: 064
     Dates: start: 20110323, end: 20110910
  3. SEROQUEL XL [Suspect]
     Indication: DEPRESSION
     Route: 064
     Dates: start: 20110323, end: 20110910
  4. FLUOXETINE [Suspect]
     Indication: DEPRESSION
     Route: 064
     Dates: start: 20100621, end: 20111004
  5. DIHYDROCODEINE [Suspect]
     Indication: PAIN
     Route: 064
     Dates: start: 20100315
  6. PROPRANOLOL [Suspect]
     Indication: ANXIETY
     Route: 064
     Dates: start: 20090505
  7. PROPRANOLOL [Suspect]
     Indication: PALPITATIONS
     Route: 064
     Dates: start: 20090505
  8. CITALOPRAM [Suspect]
     Indication: DEPRESSION
     Route: 064
     Dates: start: 20111004
  9. CHLORPROMAZINE [Suspect]
     Indication: ANXIETY
     Route: 064
     Dates: start: 20110922

REACTIONS (5)
  - Premature baby [Unknown]
  - Neonatal respiratory distress syndrome [Unknown]
  - Hypocalcaemia [Unknown]
  - Pneumothorax [Unknown]
  - Drug withdrawal syndrome neonatal [Unknown]
